FAERS Safety Report 6821725-4 (Version None)
Quarter: 2010Q3

REPORT INFORMATION
  Report Type: 
  Country: None (occurrence: None)
  Receive Date: 20100702
  Receipt Date: 20100617
  Transmission Date: 20110219
  Serious: Yes (Hospitalization)
  Sender: FDA-Public Use
  Company Number: 2010002474

PATIENT
  Age: 63 Year
  Sex: Male

DRUGS (6)
  1. TARCEVA [Suspect]
     Indication: LUNG NEOPLASM MALIGNANT
     Dosage: 150 MG, QD, ORAL
     Route: 048
     Dates: start: 20100415, end: 20100517
  2. ACETAMINOPHEN [Concomitant]
  3. OMEPRAZOLE [Concomitant]
  4. MORPHINE [Concomitant]
  5. FUROSEMIDE [Concomitant]
  6. PREDNISOLONE [Concomitant]

REACTIONS (1)
  - HAEMOPTYSIS [None]
